FAERS Safety Report 4642353-5 (Version None)
Quarter: 2005Q2

REPORT INFORMATION
  Report Type: 
  Country: None (occurrence: None)
  Receive Date: 20050422
  Receipt Date: 20050411
  Transmission Date: 20051028
  Serious: Yes (Other)
  Sender: FDA-Public Use
  Company Number: GB-JNJFOC-20040402408

PATIENT
  Sex: Male
  Weight: 69 kg

DRUGS (11)
  1. REMICADE [Suspect]
     Route: 042
  2. METHOTREXATE [Concomitant]
  3. PREDNISOLONE [Concomitant]
  4. LANSOPRAZOLE [Concomitant]
  5. DICLOFENAC SODIUM [Concomitant]
  6. DIHYDROCODEINE BITARTRATE INJ [Concomitant]
  7. FERROUS SULFATE TAB [Concomitant]
  8. CALCEOS [Concomitant]
  9. CALCEOS [Concomitant]
  10. ELOCON [Concomitant]
  11. FOLIC ACID [Concomitant]

REACTIONS (3)
  - MULTI-ORGAN FAILURE [None]
  - SEPSIS [None]
  - TONGUE NEOPLASM MALIGNANT STAGE UNSPECIFIED [None]
